FAERS Safety Report 8616139-0 (Version None)
Quarter: 2012Q3

REPORT INFORMATION
  Report Type: 
  Country: None (occurrence: None)
  Receive Date: 20120815
  Receipt Date: 20120815
  Transmission Date: 20120928
  Serious: Yes (Life-Threatening)
  Sender: FDA-Public Use
  Company Number: None

PATIENT
  Age: 36 Year
  Sex: Female
  Weight: 72.5755 kg

DRUGS (12)
  1. DECADRON [Concomitant]
  2. .. [Concomitant]
  3. PROPRANOLOL [Suspect]
     Dosage: 80MG Q6H PO
     Route: 048
     Dates: start: 20120412, end: 20120412
  4. DILTIAZEM 8MG/HR [Concomitant]
     Dosage: 8MG/HR CONTINUOUS IV DRIP
     Route: 041
     Dates: start: 20120412, end: 20120412
  5. .. [Concomitant]
  6. NEXIUM [Concomitant]
  7. .. [Concomitant]
  8. TAPAZOLE [Concomitant]
  9. .. [Concomitant]
  10. .. [Concomitant]
  11. .. [Concomitant]
  12. .. [Concomitant]

REACTIONS (5)
  - MEDICATION ERROR [None]
  - BLOOD GLUCOSE INCREASED [None]
  - CARDIO-RESPIRATORY ARREST [None]
  - OVERDOSE [None]
  - ATRIOVENTRICULAR BLOCK COMPLETE [None]
